FAERS Safety Report 6013986-9 (Version None)
Quarter: 2008Q4

REPORT INFORMATION
  Report Type: 
  Country: None (occurrence: None)
  Receive Date: 20081216
  Receipt Date: 20080603
  Transmission Date: 20090506
  Serious: Yes (Other)
  Sender: FDA-Public Use
  Company Number: US-WYE-H04358808

PATIENT
  Age: 59 Year
  Sex: Male
  Weight: 77.18 kg

DRUGS (3)
  1. EFFEXOR XR [Suspect]
     Indication: DEPRESSION
     Dosage: ^LOWERED^-DOSE NOT SPECIFIED, ORAL : 1000 MG DAILY, ORAL
     Route: 048
     Dates: end: 20030101
  2. EFFEXOR XR [Suspect]
     Indication: DEPRESSION
     Dosage: ^LOWERED^-DOSE NOT SPECIFIED, ORAL : 1000 MG DAILY, ORAL
     Route: 048
     Dates: start: 20030101, end: 20061101
  3. WELLBUTRIN [Concomitant]

REACTIONS (2)
  - BONE PAIN [None]
  - DEAFNESS [None]
